FAERS Safety Report 4457104-7 (Version None)
Quarter: 2004Q3

REPORT INFORMATION
  Report Type: 
  Country: None (occurrence: None)
  Receive Date: 20040923
  Receipt Date: 20040916
  Transmission Date: 20050211
  Serious: Yes (Hospitalization, Other)
  Sender: FDA-Public Use
  Company Number: PHEH2004US10037

PATIENT
  Age: 3 Day
  Sex: Male

DRUGS (1)
  1. METHERGINE [Suspect]
     Dosage: UNK, ONCE/SINGLE
     Dates: start: 20040913, end: 20040913

REACTIONS (4)
  - ACCIDENTAL EXPOSURE [None]
  - BLOOD URINE [None]
  - HAEMATEMESIS [None]
  - MEDICATION ERROR [None]
